FAERS Safety Report 9033013 (Version 1)
Quarter: 2013Q1

REPORT INFORMATION
  Report Type: Spontaneous
  Country: US (occurrence: US)
  Receive Date: 20130128
  Receipt Date: 20130128
  Transmission Date: 20140127
  Serious: No
  Sender: FDA-Public Use
  Company Number: US-009507513-1301USA011551

PATIENT
  Age: 19 Year
  Sex: Female
  Weight: 73.92 kg

DRUGS (1)
  1. NEXPLANON [Suspect]
     Indication: CONTRACEPTION
     Dosage: 1 DF, UNK
     Route: 059
     Dates: start: 20121015

REACTIONS (4)
  - Application site erythema [Unknown]
  - Implant site swelling [Unknown]
  - Application site pruritus [Unknown]
  - Application site vesicles [Unknown]
